FAERS Safety Report 9902970 (Version 1)
Quarter: 2014Q1

REPORT INFORMATION
  Report Type: Spontaneous
  Country: IT (occurrence: IT)
  Receive Date: 20140217
  Receipt Date: 20140217
  Transmission Date: 20141002
  Serious: Yes (Other)
  Sender: FDA-Public Use
  Company Number: PHHY2014IT018942

PATIENT
  Sex: Female

DRUGS (7)
  1. CICLOSPORIN [Suspect]
     Indication: PROPHYLAXIS AGAINST GRAFT VERSUS HOST DISEASE
  2. METHOTREXATE [Suspect]
     Indication: PROPHYLAXIS AGAINST GRAFT VERSUS HOST DISEASE
  3. PREDNISONE [Suspect]
     Dosage: 1 MG/KG, UNK
  4. IMMUNOGLOBULIN I.V [Suspect]
     Dosage: 800 MG/KGX2
     Route: 042
  5. FLUDARABINE [Concomitant]
  6. CYCLOPHOSPHAMIDE [Concomitant]
  7. ANTITHYMOCYTE IMMUNOGLOBULIN [Concomitant]

REACTIONS (2)
  - Thrombocytopenia [Unknown]
  - No therapeutic response [Unknown]
